FAERS Safety Report 4864508-7 (Version None)
Quarter: 2005Q4

REPORT INFORMATION
  Report Type: 
  Country: None (occurrence: None)
  Receive Date: 20051222
  Receipt Date: 20051213
  Transmission Date: 20060501
  Serious: Yes (Death)
  Sender: FDA-Public Use
  Company Number: AU-ROCHE-428558

PATIENT
  Age: 31 Year
  Sex: Male

DRUGS (2)
  1. VALIUM [Suspect]
     Indication: DRUG USE FOR UNKNOWN INDICATION
     Route: 065
  2. CLOZARIL [Suspect]
     Dosage: FROM 28 OCT 1996 ON THE PATIENT TOOK 25 MG DAILY. ON 18 JANUARY 2004 THE PATIENT SWITCHED TO 12.5 M+
     Route: 048
     Dates: start: 19961028

REACTIONS (4)
  - AGITATION [None]
  - COMPLETED SUICIDE [None]
  - MALAISE [None]
  - WEIGHT INCREASED [None]
